FAERS Safety Report 6189228-0 (Version None)
Quarter: 2009Q2

REPORT INFORMATION
  Report Type: 
  Country: None (occurrence: None)
  Receive Date: 20090512
  Receipt Date: 20090501
  Transmission Date: 20091009
  Serious: Yes (Hospitalization)
  Sender: FDA-Public Use
  Company Number: GXKR2009DK05330

PATIENT
  Age: 49 Year
  Sex: Male

DRUGS (13)
  1. CLARITHROMYCIN [Suspect]
     Indication: MYCOBACTERIUM MARINUM INFECTION
     Dosage: 500 MG, BID
  2. CLARITHROMYCIN [Suspect]
     Indication: MYCOBACTERIUM MARINUM INFECTION
     Dosage: 500 MG, BID
  3. DOXYCYCLINE [Suspect]
     Indication: MYCOBACTERIUM MARINUM INFECTION
     Dosage: 100 MG, BID,
  4. RIFAMPICIN [Suspect]
     Indication: MYCOBACTERIUM MARINUM INFECTION
     Dosage: 600 MG, QD
  5. ETHAMBUTOL (NGX) (ETHAMBUTOL) UNKNOWN [Suspect]
     Indication: MYCOBACTERIUM MARINUM INFECTION
     Dosage: 1200MG,QD
  6. PREDNISOLONE [Suspect]
     Indication: ARTHRITIS
  7. PREDNISOLONE [Suspect]
     Indication: SKIN LESION
  8. PREDNISOLONE [Suspect]
     Indication: TENOSYNOVITIS
  9. METHOTREXATE [Suspect]
     Indication: ARTHRITIS
  10. METHOTREXATE [Suspect]
     Indication: SKIN LESION
  11. METHOTREXATE [Suspect]
     Indication: TENOSYNOVITIS
  12. INFLIXIMAB (INFLIXIMAB) [Suspect]
     Indication: ARTHRITIS
  13. INFLIXIMAB (INFLIXIMAB) [Suspect]
     Indication: TENOSYNOVITIS

REACTIONS (9)
  - ACIDOSIS [None]
  - ANOREXIA [None]
  - AZOTAEMIA [None]
  - CONFUSIONAL STATE [None]
  - HAEMODIALYSIS [None]
  - HYPERCALCAEMIA [None]
  - NAUSEA [None]
  - RENAL FAILURE [None]
  - VOMITING [None]
